FAERS Safety Report 6692794-X (Version None)
Quarter: 2010Q2

REPORT INFORMATION
  Report Type: 
  Country: None (occurrence: None)
  Receive Date: 20100412
  Receipt Date: 20100325
  Transmission Date: 20101027
  Serious: Yes (Hospitalization, Other)
  Sender: FDA-Public Use
  Company Number: 20091216CINRY1309

PATIENT
  Age: 46 Year
  Sex: Male

DRUGS (2)
  1. CINRYZE [Suspect]
     Indication: ANGIOEDEMA
     Dosage: 1000 UNIT, 1 IN 3 D, INTRAVENOUS
     Route: 042
     Dates: start: 20080601
  2. CINRYZE [Suspect]
     Indication: PROPHYLAXIS
     Dosage: 1000 UNIT, 1 IN 3 D, INTRAVENOUS
     Route: 042
     Dates: start: 20080601

REACTIONS (7)
  - BACTERIAL INFECTION [None]
  - DEVICE RELATED INFECTION [None]
  - INCORRECT STORAGE OF DRUG [None]
  - PRODUCT CONTAMINATION MICROBIAL [None]
  - PRODUCT QUALITY ISSUE [None]
  - ROAD TRAFFIC ACCIDENT [None]
  - WRONG TECHNIQUE IN DRUG USAGE PROCESS [None]
